FAERS Safety Report 7506868-4 (Version None)
Quarter: 2011Q2

REPORT INFORMATION
  Report Type: 
  Country: None (occurrence: None)
  Receive Date: 20110526
  Receipt Date: 20110518
  Transmission Date: 20111010
  Serious: Yes (Other)
  Sender: FDA-Public Use
  Company Number: B0721824A

PATIENT
  Sex: Male

DRUGS (10)
  1. IMIPENEME [Concomitant]
     Indication: ENTEROBACTER INFECTION
     Route: 065
     Dates: start: 20110321, end: 20110331
  2. AMIODARONE HCL [Suspect]
     Route: 042
     Dates: start: 20110322, end: 20110331
  3. FUROSEMIDE [Suspect]
     Route: 048
     Dates: end: 20110401
  4. ENOXAPARIN [Concomitant]
     Route: 058
  5. RYTHMOL [Suspect]
     Dosage: 300MG PER DAY
     Route: 048
     Dates: start: 20110331, end: 20110401
  6. RAMIPRIL [Suspect]
     Route: 065
     Dates: start: 20110331
  7. NICARDIPINE HCL [Suspect]
     Route: 065
     Dates: start: 20110326, end: 20110401
  8. ESOMEPRAZOLE MAGNESIUM [Suspect]
     Route: 042
     Dates: start: 20110304
  9. DESLORATADINE [Concomitant]
     Route: 048
  10. PRIMAXIN [Suspect]
     Dosage: 3G PER DAY
     Route: 048
     Dates: start: 20110321, end: 20110401

REACTIONS (4)
  - INFECTION [None]
  - RASH [None]
  - WHITE BLOOD CELL COUNT INCREASED [None]
  - NEUTROPENIA [None]
